FAERS Safety Report 14094706 (Version 1)
Quarter: 2017Q4

REPORT INFORMATION
  Report Type: Spontaneous
  Country: US (occurrence: US)
  Receive Date: 20171016
  Receipt Date: 20171016
  Transmission Date: 20180321
  Serious: No
  Sender: FDA-Public Use
  Company Number: US-AMGEN-USASP2017029369

PATIENT
  Age: 84 Year
  Sex: Female

DRUGS (2)
  1. HYALGAN [Concomitant]
     Active Substance: HYALURONATE SODIUM
     Indication: ARTHRALGIA
  2. PROLIA [Suspect]
     Active Substance: DENOSUMAB
     Indication: OSTEOPOROSIS
     Dosage: UNK UNK, UNK
     Route: 065
     Dates: start: 20140811

REACTIONS (12)
  - Chondropathy [Unknown]
  - Mobility decreased [Unknown]
  - Pain in extremity [Unknown]
  - Musculoskeletal stiffness [Unknown]
  - Feeling abnormal [Unknown]
  - Insomnia [Unknown]
  - Musculoskeletal discomfort [Unknown]
  - Malaise [Unknown]
  - Bone density abnormal [Unknown]
  - Incorrect route of drug administration [Unknown]
  - Urinary incontinence [Unknown]
  - Headache [Unknown]

NARRATIVE: CASE EVENT DATE: 201607
